FAERS Safety Report 5321174-4 (Version None)
Quarter: 2007Q2

REPORT INFORMATION
  Report Type: 
  Country: None (occurrence: None)
  Receive Date: 20070507
  Receipt Date: 20070507
  Transmission Date: 20071010
  Serious: Yes (Other)
  Sender: FDA-Public Use
  Company Number: None

PATIENT
  Age: 79 Year
  Sex: Male
  Weight: 74.8435 kg

DRUGS (1)
  1. LEVAQUIN [Suspect]
     Indication: UPPER RESPIRATORY TRACT INFECTION
     Dosage: 750MG   1 DAILY  PO
     Route: 048
     Dates: start: 20070420, end: 20070425

REACTIONS (3)
  - GAIT DISTURBANCE [None]
  - PAIN [None]
  - TENDONITIS [None]
